FAERS Safety Report 7929188-2 (Version None)
Quarter: 2011Q4

REPORT INFORMATION
  Report Type: 
  Country: None (occurrence: None)
  Receive Date: 20111120
  Receipt Date: 20111024
  Transmission Date: 20120403
  Serious: No
  Sender: FDA-Public Use
  Company Number: US-ROXANE LABORATORIES, INC.-2011-RO-01235RO

PATIENT
  Sex: Male

DRUGS (2)
  1. BUPRENORPHINE HCL [Suspect]
     Dosage: 16 MG
  2. BUPRENORPHINE HCL [Suspect]
     Dosage: 8 MG

REACTIONS (2)
  - WITHDRAWAL SYNDROME [None]
  - DRUG INEFFECTIVE [None]
